FAERS Safety Report 10206471 (Version 1)
Quarter: 2014Q2

REPORT INFORMATION
  Report Type: Spontaneous
  Country: TW (occurrence: TW)
  Receive Date: 20140530
  Receipt Date: 20140530
  Transmission Date: 20141212
  Serious: Yes (Death, Hospitalization)
  Sender: FDA-Public Use
  Company Number: TW-TEVA-484117ISR

PATIENT
  Age: 80 Year
  Sex: Male
  Weight: 59.4 kg

DRUGS (4)
  1. FLUOROURACIL [Suspect]
     Indication: COLON CANCER METASTATIC
     Route: 065
     Dates: start: 20120605, end: 20120607
  2. AVASTIN [Suspect]
     Indication: COLON CANCER METASTATIC
     Dosage: 5MG/KG
     Route: 065
  3. FOLINIC ACID [Suspect]
     Indication: COLON CANCER METASTATIC
     Route: 065
     Dates: start: 20120605, end: 20120607
  4. IRINOTECAN [Suspect]
     Indication: COLON CANCER METASTATIC
     Dosage: 144MG/M2
     Route: 065
     Dates: start: 20120605, end: 20120607

REACTIONS (1)
  - Tumour lysis syndrome [Fatal]
